FAERS Safety Report 19023407 (Version 1)
Quarter: 2021Q1

REPORT INFORMATION
  Report Type: Report from Study
  Country: US (occurrence: US)
  Receive Date: 20210318
  Receipt Date: 20210318
  Transmission Date: 20210420
  Serious: Yes (Hospitalization)
  Sender: FDA-Public Use
  Company Number: US-PACIRA-2021000212

PATIENT
  Age: 81 Year
  Sex: Male
  Weight: 92 kg

DRUGS (13)
  1. MIDAZOLAM. [Concomitant]
     Active Substance: MIDAZOLAM
     Indication: INTRAOPERATIVE CARE
     Dosage: NOT REPORTED
     Route: 065
  2. SUBLIMAZE [Concomitant]
     Active Substance: FENTANYL CITRATE
     Indication: POSTOPERATIVE ANALGESIA
     Dosage: 11:56AM 25 MCG
     Route: 042
     Dates: start: 20191213
  3. ONDANSETRON [Concomitant]
     Active Substance: ONDANSETRON
     Indication: INTRAOPERATIVE CARE
     Dosage: NOT REPORTED
     Route: 065
  4. ULTRAM [Concomitant]
     Active Substance: TRAMADOL HYDROCHLORIDE
     Indication: POSTOPERATIVE ANALGESIA
     Dosage: 1?2 TABLETS (50?100 MG TOTAL) EVERY 4 HOURS AS NEEDED AT DISCHARGE.
     Route: 048
  5. BUPIVACAINE. [Suspect]
     Active Substance: BUPIVACAINE
     Indication: POSTOPERATIVE ANALGESIA
     Dosage: 2019; 30ML
     Route: 065
  6. CELEBREX [Concomitant]
     Active Substance: CELECOXIB
     Indication: PREOPERATIVE CARE
     Dosage: NOT PROVIDED
     Route: 065
  7. EXPAREL [Suspect]
     Active Substance: BUPIVACAINE
     Indication: POSTOPERATIVE ANALGESIA
     Dosage: 2019 20ML AND 40ML SALINE TOTAL VOLUME 60ML
     Route: 065
  8. SALINE [Concomitant]
     Active Substance: SODIUM CHLORIDE
     Indication: POSTOPERATIVE ANALGESIA
     Dosage: 2019; 40ML WITH 20ML EXPAREL. TOTAL VOLUME 60ML
     Route: 065
  9. PROPOFOL. [Concomitant]
     Active Substance: PROPOFOL
     Indication: INTRAOPERATIVE CARE
     Dosage: NOT REPORTED
     Route: 065
  10. DEXAMETHASONE. [Concomitant]
     Active Substance: DEXAMETHASONE
     Indication: INTRAOPERATIVE CARE
     Dosage: NOT REPORTED
     Route: 065
  11. OXYGEN. [Concomitant]
     Active Substance: OXYGEN
     Indication: INTRAOPERATIVE CARE
     Dosage: NOT REPORTED
     Route: 065
  12. TYLENOL [Concomitant]
     Active Substance: ACETAMINOPHEN
     Indication: INTRAOPERATIVE CARE
     Dosage: NOT REPORTED
     Route: 042
  13. ULTRAM [Concomitant]
     Active Substance: TRAMADOL HYDROCHLORIDE
     Indication: POSTOPERATIVE ANALGESIA
     Dosage: 12:41PM 50 MG
     Route: 048
     Dates: start: 20191213

REACTIONS (1)
  - Device mechanical issue [Unknown]
